FAERS Safety Report 7086564-0 (Version None)
Quarter: 2010Q4

REPORT INFORMATION
  Report Type: 
  Country: None (occurrence: None)
  Receive Date: 20101105
  Receipt Date: 20101021
  Transmission Date: 20110411
  Serious: Yes (Hospitalization, Other)
  Sender: FDA-Public Use
  Company Number: PHHY2010DE70651

PATIENT
  Sex: Male

DRUGS (3)
  1. GLEEVEC [Suspect]
     Indication: CHRONIC MYELOID LEUKAEMIA
     Dosage: UNK
     Dates: start: 20000101
  2. CHEMOTHERAPEUTICS NOS [Concomitant]
  3. IMMUNOSUPPRESSANTS [Concomitant]

REACTIONS (5)
  - COMA [None]
  - FUNGAL INFECTION [None]
  - INFERTILITY [None]
  - LUNG INFECTION [None]
  - RENAL FAILURE [None]
